FAERS Safety Report 14583115 (Version 1)
Quarter: 2018Q1

REPORT INFORMATION
  Report Type: Spontaneous
  Country: US (occurrence: US)
  Receive Date: 20180228
  Receipt Date: 20180228
  Transmission Date: 20180509
  Serious: Yes (Other)
  Sender: FDA-Public Use
  Company Number: US-ELI_LILLY_AND_COMPANY-US201802011119

PATIENT
  Sex: Male

DRUGS (2)
  1. 5 FU [Concomitant]
     Active Substance: FLUOROURACIL
  2. ERBITUX [Suspect]
     Active Substance: CETUXIMAB
     Indication: COLORECTAL CANCER STAGE IV
     Dosage: UNK, 2/M
     Route: 065

REACTIONS (4)
  - Lung neoplasm malignant [Unknown]
  - Dry skin [Unknown]
  - Skin exfoliation [Unknown]
  - Hepatic cancer [Unknown]
